FAERS Safety Report 20046424 (Version 1)
Quarter: 2021Q4

REPORT INFORMATION
  Report Type: Spontaneous
  Country: US (occurrence: US)
  Receive Date: 20211109
  Receipt Date: 20211109
  Transmission Date: 20220303
  Serious: Yes (Other)
  Sender: FDA-Public Use
  Company Number: US-ENDO PHARMACEUTICALS INC-2021-012612

PATIENT
  Age: 67 Year
  Sex: Male

DRUGS (2)
  1. VASOSTRICT [Suspect]
     Active Substance: VASOPRESSIN
     Indication: Mean arterial pressure decreased
     Dosage: UNK UNKNOWN, INFUSION
     Route: 065
  2. VASOSTRICT [Suspect]
     Active Substance: VASOPRESSIN
     Indication: Blood catecholamines increased

REACTIONS (1)
  - Acute myocardial infarction [Recovered/Resolved]
